FAERS Safety Report 8000918-7 (Version None)
Quarter: 2011Q4

REPORT INFORMATION
  Report Type: 
  Country: None (occurrence: None)
  Receive Date: 20111219
  Receipt Date: 20111205
  Transmission Date: 20120403
  Serious: Yes (Other)
  Sender: FDA-Public Use
  Company Number: 2011MA017312

PATIENT
  Age: 26 Year
  Sex: Male

DRUGS (1)
  1. IBUPROFEN [Suspect]
     Indication: UPPER RESPIRATORY TRACT INFECTION

REACTIONS (5)
  - MYALGIA [None]
  - SELF-MEDICATION [None]
  - PYREXIA [None]
  - KAWASAKI'S DISEASE [None]
  - PHARYNGEAL ERYTHEMA [None]
